FAERS Safety Report 5375750-3 (Version None)
Quarter: 2007Q2

REPORT INFORMATION
  Report Type: 
  Country: None (occurrence: None)
  Receive Date: 20070628
  Receipt Date: 20070618
  Transmission Date: 20071010
  Serious: Yes (Hospitalization)
  Sender: FDA-Public Use
  Company Number: 2007BI012905

PATIENT
  Age: 58 Year
  Sex: Female

DRUGS (2)
  1. AVONEX [Suspect]
     Indication: MULTIPLE SCLEROSIS
     Dosage: 30 UG; QW; IM
     Route: 030
     Dates: start: 20060101
  2. GLUCOPHAGE [Concomitant]

REACTIONS (8)
  - BRAIN SCAN ABNORMAL [None]
  - CONDITION AGGRAVATED [None]
  - DIABETES MELLITUS [None]
  - FATIGUE [None]
  - MULTIPLE SCLEROSIS RELAPSE [None]
  - NIGHT SWEATS [None]
  - PAIN [None]
  - URINARY TRACT INFECTION [None]
